FAERS Safety Report 14137060 (Version 2)
Quarter: 2018Q2

REPORT INFORMATION
  Report Type: Report from Study
  Country: US (occurrence: US)
  Receive Date: 20171027
  Receipt Date: 20180427
  Transmission Date: 20180711
  Serious: Yes (Hospitalization, Other)
  Sender: FDA-Public Use
  Company Number: US-BAYER-2017-200606

PATIENT
  Age: 67 Year
  Sex: Male
  Weight: 64.4 kg

DRUGS (25)
  1. METOPROLOL. [Concomitant]
     Active Substance: METOPROLOL
     Dosage: DAILY DOSE 25 MG
  2. CATAPRES [Concomitant]
     Active Substance: CLONIDINE HYDROCHLORIDE
     Dosage: DAILY DOSE .2 MG
     Route: 048
     Dates: start: 20170402
  3. HYDRALAZINE [Concomitant]
     Active Substance: HYDRALAZINE HYDROCHLORIDE
     Dosage: 100 MG, BID
  4. STOOL SOFTENER (DOCUSATE) [Concomitant]
     Active Substance: DOCUSATE
     Dosage: UNK UNK, PRN
  5. VITAMIN B12 [Concomitant]
     Active Substance: CYANOCOBALAMIN
     Dosage: DAILY DOSE 1 MG
  6. CITALOPRAM [Concomitant]
     Active Substance: CITALOPRAM HYDROBROMIDE
     Dosage: DAILY DOSE 20 MG
  7. NORMAL SALINE [Concomitant]
     Active Substance: SODIUM CHLORIDE
     Indication: HYPERTENSION
     Dosage: HALF
  8. DOCUSATE SODIUM. [Concomitant]
     Active Substance: DOCUSATE SODIUM
     Dosage: DAILY DOSE 100 MG
     Route: 048
     Dates: start: 20171006
  9. LORAZEPAM. [Concomitant]
     Active Substance: LORAZEPAM
     Dosage: 1 MG, BID, PRN
     Route: 048
  10. FAMOTIDINE. [Concomitant]
     Active Substance: FAMOTIDINE
     Dosage: 20 MG, QD
  11. MULTIVITAMINS [Concomitant]
     Active Substance: VITAMINS
     Dosage: DAILY DOSE 1 DF
     Route: 048
     Dates: start: 20171006
  12. K-LOR [Concomitant]
     Active Substance: POTASSIUM CHLORIDE
     Dosage: DAILY DOSE 20 MEQ
     Route: 048
     Dates: start: 20160911
  13. PROMETHAZINE [Concomitant]
     Active Substance: PROMETHAZINE\PROMETHAZINE HYDROCHLORIDE
     Dosage: 25 MG, PRN
  14. IRINOTECAN [Concomitant]
     Active Substance: IRINOTECAN
     Dosage: UNK
     Dates: start: 20171128
  15. STIVARGA [Suspect]
     Active Substance: REGORAFENIB
     Indication: PLASMA CELL MYELOMA
     Dosage: 160 MG, QD THREE WEEKS ON ONE WEEK OFF
     Route: 048
     Dates: start: 20160917, end: 201710
  16. GABAPENTIN. [Concomitant]
     Active Substance: GABAPENTIN
     Dosage: 100 MG, TID
     Route: 048
     Dates: start: 20170402
  17. PRINIVIL [Concomitant]
     Active Substance: LISINOPRIL
     Dosage: DAILY DOSE 20 MG
     Route: 048
     Dates: start: 20170402
  18. LEXAPRO [Concomitant]
     Active Substance: ESCITALOPRAM OXALATE
     Dosage: DAILY DOSE 10 MG
     Route: 048
     Dates: start: 20170618
  19. XYZAL [Concomitant]
     Active Substance: LEVOCETIRIZINE DIHYDROCHLORIDE
     Dosage: DAILY DOSE 5 MG
     Route: 048
     Dates: start: 20171006
  20. RAMUCIRUMAB [Concomitant]
     Active Substance: RAMUCIRUMAB
     Dosage: 500 MG, Q2WK
     Route: 042
     Dates: start: 20171128
  21. STIVARGA [Suspect]
     Active Substance: REGORAFENIB
     Indication: PLASMA CELL MYELOMA
     Dosage: DAILY DOSE 40 MG
     Route: 048
     Dates: start: 20170618
  22. HYDROCODONE [Concomitant]
     Active Substance: HYDROCODONE
     Indication: PAIN
     Dosage: 5/235 AS NEEDED
  23. DOXAZOSIN [Concomitant]
     Active Substance: DOXAZOSIN\DOXAZOSIN MESYLATE
     Dosage: DAILY DOSE 4 MG
  24. LOSARTAN. [Concomitant]
     Active Substance: LOSARTAN
     Dosage: 100 MG, QD
  25. HYDRALAZINE HCL [Concomitant]
     Active Substance: HYDRALAZINE HYDROCHLORIDE
     Dosage: 100 MG, BID
     Route: 048
     Dates: start: 20160911

REACTIONS (10)
  - Off label use [None]
  - Pancreatitis [None]
  - Colorectal cancer metastatic [None]
  - Lipase increased [None]
  - Abdominal discomfort [Recovering/Resolving]
  - Product use in unapproved indication [None]
  - Abdominal pain upper [None]
  - Gastric disorder [None]
  - Metastases to lung [None]
  - Dry mouth [None]

NARRATIVE: CASE EVENT DATE: 20171005
